FAERS Safety Report 6212354-4 (Version None)
Quarter: 2009Q2

REPORT INFORMATION
  Report Type: 
  Country: None (occurrence: None)
  Receive Date: 20090529
  Receipt Date: 20090514
  Transmission Date: 20091009
  Serious: Yes (Hospitalization)
  Sender: FDA-Public Use
  Company Number: 20090178

PATIENT
  Age: 41 Month
  Sex: Male
  Weight: 20 kg

DRUGS (4)
  1. VENOFER [Suspect]
     Dosage: 100MG, 2 ADMINISTRATIONS INTRAVENOUS
     Route: 042
     Dates: start: 20090226, end: 20090228
  2. PARACETAMOL [Concomitant]
  3. KETAMINE HCL [Concomitant]
  4. HEPARIN [Concomitant]

REACTIONS (1)
  - RHABDOMYOLYSIS [None]
